FAERS Safety Report 7795357-8 (Version None)
Quarter: 2011Q4

REPORT INFORMATION
  Report Type: 
  Country: None (occurrence: None)
  Receive Date: 20111004
  Receipt Date: 20110923
  Transmission Date: 20120403
  Serious: Yes (Other)
  Sender: FDA-Public Use
  Company Number: CZ-JNJFOC-20110812894

PATIENT
  Sex: Male

DRUGS (4)
  1. METHOTREXATE [Concomitant]
  2. ATRILON [Concomitant]
  3. REMICADE [Suspect]
     Indication: RHEUMATOID ARTHRITIS
     Route: 042
     Dates: start: 20091118, end: 20110318
  4. MEDROL [Concomitant]

REACTIONS (3)
  - TRANSIENT ISCHAEMIC ATTACK [None]
  - HEMIANOPIA HOMONYMOUS [None]
  - CAROTID ARTERY STENOSIS [None]
